FAERS Safety Report 4381140-2 (Version None)
Quarter: 2004Q2

REPORT INFORMATION
  Report Type: 
  Country: None (occurrence: None)
  Receive Date: 20040614
  Receipt Date: 20040528
  Transmission Date: 20050107
  Serious: Yes (Death)
  Sender: FDA-Public Use
  Company Number: 2004-SW-00155DB

PATIENT
  Age: 57 Year
  Sex: Male

DRUGS (5)
  1. MOBIC [Suspect]
     Indication: MUSCULOSKELETAL PAIN
     Dosage: SEE TEXT (7.5 MG,7.5 MG X 2-3), PO
     Route: 048
     Dates: start: 19980101, end: 20040401
  2. RISPERDAL [Concomitant]
  3. ATENOR (ATENOLOL) [Concomitant]
  4. OXABENZ (OXAZEPAM) [Concomitant]
  5. CITADUR (CITALOPRAM) [Concomitant]

REACTIONS (8)
  - ANAEMIA [None]
  - AORTIC ATHEROSCLEROSIS [None]
  - CORONARY ARTERY ATHEROSCLEROSIS [None]
  - DUODENAL ULCER HAEMORRHAGE [None]
  - EXSANGUINATION [None]
  - FEELING ABNORMAL [None]
  - SHOCK [None]
  - SYNCOPE [None]
